FAERS Safety Report 14924777 (Version 4)
Quarter: 2023Q1

REPORT INFORMATION
  Report Type: Report from Study
  Country: ES (occurrence: ES)
  Receive Date: 20180522
  Receipt Date: 20230112
  Transmission Date: 20230418
  Serious: Yes (Hospitalization)
  Sender: FDA-Public Use
  Company Number: None

PATIENT
  Age: 60 Year
  Sex: Male

DRUGS (5)
  1. BISOPROLOL [Interacting]
     Active Substance: BISOPROLOL
     Indication: Product used for unknown indication
     Dosage: (2328A)
     Route: 048
     Dates: start: 20140226, end: 20160911
  2. IVABRADINE [Interacting]
     Active Substance: IVABRADINE
     Indication: Product used for unknown indication
     Dosage: (2992A)
     Route: 048
     Dates: start: 20130111, end: 20160911
  3. HYDROCHLOROTHIAZIDE\LISINOPRIL [Interacting]
     Active Substance: HYDROCHLOROTHIAZIDE\LISINOPRIL
     Indication: Hypertension
     Dosage: 20 MG/12, 5 MG TABLETS EFG, 28 TABLETS
     Route: 048
     Dates: start: 20160803, end: 20160911
  4. ASPIRIN [Interacting]
     Active Substance: ASPIRIN
     Indication: Product used for unknown indication
     Dosage: 100 MG TABLETS, 30 TABLETS
     Route: 048
     Dates: start: 20091127, end: 20160911
  5. IBUPROFEN [Concomitant]
     Active Substance: IBUPROFEN
     Indication: Product used for unknown indication
     Dosage: (1769A)
     Route: 048
     Dates: start: 20160910, end: 20160910

REACTIONS (3)
  - Hyperkalaemia [Recovered/Resolved]
  - Acute kidney injury [Recovered/Resolved]
  - Drug interaction [Unknown]

NARRATIVE: CASE EVENT DATE: 20160914
